FAERS Safety Report 6700472-3 (Version None)
Quarter: 2010Q2

REPORT INFORMATION
  Report Type: 
  Country: None (occurrence: None)
  Receive Date: 20100428
  Receipt Date: 20100426
  Transmission Date: 20101027
  Serious: Yes (Other)
  Sender: FDA-Public Use
  Company Number: GXKR2010DE04596

PATIENT
  Age: 71 Year
  Sex: Male

DRUGS (1)
  1. LISIHEXAL (NGX) [Suspect]
     Dosage: 20 MG, UNK
     Route: 048

REACTIONS (3)
  - BRONCHIAL DISORDER [None]
  - PARESIS [None]
  - RASH [None]
